FAERS Safety Report 7030225-0 (Version None)
Quarter: 2010Q4

REPORT INFORMATION
  Report Type: 
  Country: None (occurrence: None)
  Receive Date: 20101006
  Receipt Date: 20100925
  Transmission Date: 20110411
  Serious: Yes (Other)
  Sender: FDA-Public Use
  Company Number: ZA-RANBAXY-2010R5-38470

PATIENT

DRUGS (2)
  1. SIMVASTATIN [Suspect]
     Indication: PRODUCT USED FOR UNKNOWN INDICATION
     Dosage: 20 MG, QD
  2. SIMVASTATIN [Suspect]
     Dosage: 40 MG, QD

REACTIONS (4)
  - BLINDNESS TRANSIENT [None]
  - EYE PAIN [None]
  - MYALGIA [None]
  - OCULAR HYPERAEMIA [None]
